FAERS Safety Report 12381015 (Version 3)
Quarter: 2016Q2

REPORT INFORMATION
  Report Type: Report from Study
  Country: JP (occurrence: JP)
  Receive Date: 20160518
  Receipt Date: 20160622
  Transmission Date: 20160815
  Serious: Yes (Hospitalization)
  Sender: FDA-Public Use
  Company Number: JP-PFIZER INC-2016250613

PATIENT
  Age: 73 Year
  Sex: Female
  Weight: 50 kg

DRUGS (9)
  1. ETIZOLAM [Concomitant]
     Active Substance: ETIZOLAM
     Indication: INSOMNIA
     Dosage: 0.5 MG, 1X/DAY
     Route: 048
     Dates: start: 20160421
  2. LYRICA [Concomitant]
     Active Substance: PREGABALIN
     Indication: INTERVERTEBRAL DISC PROTRUSION
     Dosage: 25 MG, 1X/DAY
     Route: 048
     Dates: start: 20120605
  3. DOVOBET [Concomitant]
     Active Substance: BETAMETHASONE\CALCIPOTRIENE
     Indication: PSORIASIS
     Dosage: APPROPRIATE DOSE, 1X/DAY
     Route: 061
     Dates: start: 20160502
  4. LOXONIN [Concomitant]
     Active Substance: LOXOPROFEN SODIUM
     Indication: INTERVERTEBRAL DISC PROTRUSION
     Dosage: UNK
     Route: 062
     Dates: start: 20130319
  5. LOXOPROFEN [Concomitant]
     Active Substance: LOXOPROFEN
     Indication: INTERVERTEBRAL DISC PROTRUSION
     Dosage: 60 MG, AS NEEDED
     Route: 048
     Dates: start: 20141127
  6. TOFACITINIB CITRATE [Suspect]
     Active Substance: TOFACITINIB CITRATE
     Indication: PSORIASIS
     Dosage: 10 MG, 2X/DAY
     Route: 048
     Dates: start: 20130221, end: 20140314
  7. TOFACITINIB CITRATE [Suspect]
     Active Substance: TOFACITINIB CITRATE
     Dosage: 10 MG, 2X/DAY
     Route: 048
     Dates: start: 20140331, end: 20151011
  8. CRESTOR [Concomitant]
     Active Substance: ROSUVASTATIN CALCIUM
     Indication: HYPERLIPIDAEMIA
     Dosage: 7.5 MG, 1X/DAY
     Route: 048
     Dates: start: 20160421
  9. REBAMIPIDE [Concomitant]
     Active Substance: REBAMIPIDE
     Indication: GASTRITIS PROPHYLAXIS
     Dosage: 100 MG, AS NEEDED
     Route: 048
     Dates: start: 20160405

REACTIONS (1)
  - Teratoma [Recovered/Resolved]

NARRATIVE: CASE EVENT DATE: 20131218
